FAERS Safety Report 14788891 (Version 3)
Quarter: 2024Q4

REPORT INFORMATION
  Report Type: Spontaneous
  Country: IT (occurrence: IT)
  Receive Date: 20180423
  Receipt Date: 20241106
  Transmission Date: 20250115
  Serious: Yes (Other)
  Sender: AUROBINDO
  Company Number: IT-AUROBINDO-AUR-APL-2018-021289

PATIENT
  Age: 98 Year
  Sex: Female

DRUGS (5)
  1. RAMIPRIL [Suspect]
     Active Substance: RAMIPRIL
     Indication: Hypertension
     Dosage: 5 MILLIGRAM, DAILY
     Route: 048
     Dates: start: 20140101, end: 20171130
  2. ACETAMINOPHEN [Suspect]
     Active Substance: ACETAMINOPHEN
     Indication: Spinal osteoarthritis
     Dosage: 1000 MILLIGRAM, CYCLICAL
     Route: 048
     Dates: start: 20171101
  3. BISOPROLOL [Suspect]
     Active Substance: BISOPROLOL\BISOPROLOL FUMARATE
     Indication: Coronary artery disease
     Dosage: 5 MILLIGRAM, DAILY
     Route: 048
     Dates: start: 20140101
  4. LORAZEPAM [Suspect]
     Active Substance: LORAZEPAM
     Indication: Anxiety
     Dosage: 2.5 MILLIGRAM, AS NECESSARY
     Route: 048
     Dates: start: 20140101, end: 20171130
  5. LORAZEPAM [Concomitant]
     Active Substance: LORAZEPAM
     Indication: Product used for unknown indication
     Dosage: UNK
     Route: 065
     Dates: start: 20140101, end: 20171130

REACTIONS (1)
  - Cerebrovascular accident [Recovering/Resolving]

NARRATIVE: CASE EVENT DATE: 20171130
